FAERS Safety Report 7198118-6 (Version None)
Quarter: 2010Q4

REPORT INFORMATION
  Report Type: 
  Country: None (occurrence: None)
  Receive Date: 20101227
  Receipt Date: 20101213
  Transmission Date: 20110411
  Serious: Yes (Hospitalization)
  Sender: FDA-Public Use
  Company Number: PHHY2010BR42223

PATIENT
  Sex: Female
  Weight: 53 kg

DRUGS (12)
  1. ACLASTA [Suspect]
     Indication: OSTEOPOROSIS
     Dosage: 5MG/100ML
     Dates: start: 20091105
  2. MABTHERA [Concomitant]
     Indication: SYSTEMIC LUPUS ERYTHEMATOSUS
     Dosage: 1000 MG, UNK
     Dates: start: 20090605
  3. MABTHERA [Concomitant]
     Dosage: 1000 MG, UNK
     Dates: start: 20090619
  4. MABTHERA [Concomitant]
     Dosage: 1000 MG, UNK
     Dates: start: 20091105
  5. MABTHERA [Concomitant]
     Dosage: 1000 MG, UNK
     Dates: start: 20100208
  6. MABTHERA [Concomitant]
     Dosage: 1000 MG, UNK
     Dates: start: 20100223
  7. MAREVAN [Concomitant]
     Dosage: 5 MG, UNK
  8. ATACAND [Concomitant]
     Indication: PULMONARY ARTERIAL PRESSURE
  9. LASIX [Concomitant]
     Dosage: 40 MG, UNK
  10. DIOSMIN [Concomitant]
  11. LOVAZA [Concomitant]
  12. CALCIO [Concomitant]

REACTIONS (5)
  - ALOPECIA [None]
  - DERMATITIS BULLOUS [None]
  - HERPES ZOSTER [None]
  - PARAESTHESIA [None]
  - WOUND [None]
